FAERS Safety Report 23428404 (Version 1)
Quarter: 2024Q1

REPORT INFORMATION
  Report Type: Spontaneous
  Country: GB (occurrence: GB)
  Receive Date: 20240122
  Receipt Date: 20240122
  Transmission Date: 20240409
  Serious: Yes (Hospitalization)
  Sender: FDA-Public Use
  Company Number: GB-MYLANLABS-2024M1006395

PATIENT
  Sex: Female

DRUGS (14)
  1. CLOZARIL [Suspect]
     Active Substance: CLOZAPINE
     Indication: Schizophrenia
     Dosage: 400 MILLIGRAM, QD (NOCTE)
     Route: 048
     Dates: start: 20221014
  2. LITHIUM [Concomitant]
     Active Substance: LITHIUM
     Dosage: 1000 MILLIGRAM, QD (NOCTE)
     Route: 065
  3. COLGATE DURAPHAT [Concomitant]
     Active Substance: SODIUM FLUORIDE
     Dosage: UNK, BID (ONE APPLICATION TWICE A DAY, DENTAL USE)
     Route: 065
  4. FERROUS FUMARATE [Concomitant]
     Active Substance: FERROUS FUMARATE
     Indication: Iron deficiency anaemia
     Dosage: 210 MILLIGRAM, QD
     Route: 065
  5. SCOPOLAMINE HYDROBROMIDE [Concomitant]
     Active Substance: SCOPOLAMINE HYDROBROMIDE
     Dosage: 300 MICROGRAM, BID
     Route: 065
  6. LEVETIRACETAM [Concomitant]
     Active Substance: LEVETIRACETAM
     Indication: Epilepsy
     Dosage: 750 MILLIGRAM, BID
     Route: 065
  7. MONTELUKAST [Concomitant]
     Active Substance: MONTELUKAST SODIUM
     Dosage: 10 MILLIGRAM, QD
     Route: 065
  8. OMEPRAZOLE [Concomitant]
     Active Substance: OMEPRAZOLE
     Dosage: 20 MILLIGRAM, BID
     Route: 065
  9. CYCLIZINE [Concomitant]
     Active Substance: CYCLIZINE
     Dosage: UNK, PRN
     Route: 065
  10. DIAZEPAM [Concomitant]
     Active Substance: DIAZEPAM
     Dosage: UNK UNK, PRN
     Route: 065
  11. ALBUTEROL [Concomitant]
     Active Substance: ALBUTEROL
     Dosage: UNK UNK, PRN
     Route: 055
  12. SENNA [Concomitant]
     Active Substance: SENNA LEAF\SENNOSIDES\SENNOSIDES A AND B
     Dosage: UNK, PRN
     Route: 065
  13. SUMATRIPTAN [Concomitant]
     Active Substance: SUMATRIPTAN
     Dosage: UNK, PRN
     Route: 065
  14. BUTYLSCOPOLAMINE BROMIDE [Concomitant]
     Active Substance: BUTYLSCOPOLAMINE BROMIDE
     Dosage: UNK, PRN
     Route: 065

REACTIONS (2)
  - Hospitalisation [Recovered/Resolved]
  - Weight increased [Unknown]
